FAERS Safety Report 5003235-2 (Version None)
Quarter: 2006Q2

REPORT INFORMATION
  Report Type: 
  Country: None (occurrence: None)
  Receive Date: 20060510
  Receipt Date: 20060427
  Transmission Date: 20061013
  Serious: Yes (Hospitalization)
  Sender: FDA-Public Use
  Company Number: BR-2006-010375

PATIENT
  Age: 41 Year
  Sex: Female

DRUGS (1)
  1. BETASERON [Suspect]
     Indication: MULTIPLE SCLEROSIS
     Dosage: 1 ML EVERY 2D SUBCUTANEOUS
     Route: 058
     Dates: start: 20050401, end: 20060410

REACTIONS (8)
  - ABDOMINAL PAIN UPPER [None]
  - ARTHRALGIA [None]
  - BLINDNESS [None]
  - BLOOD PRESSURE INCREASED [None]
  - CONSTIPATION [None]
  - FATIGUE [None]
  - HEMIPLEGIA [None]
  - PROCEDURAL PAIN [None]
